FAERS Safety Report 22850846 (Version 2)
Quarter: 2024Q2

REPORT INFORMATION
  Report Type: Spontaneous
  Country: US (occurrence: US)
  Receive Date: 20230822
  Receipt Date: 20240610
  Transmission Date: 20240716
  Serious: No
  Sender: FDA-Public Use
  Company Number: US-SA-SAC20230817000861

PATIENT
  Sex: Male

DRUGS (1)
  1. DUPIXENT [Suspect]
     Active Substance: DUPILUMAB
     Dosage: 300 MG, QOW
     Route: 058
     Dates: end: 202405

REACTIONS (5)
  - Injection site pain [Unknown]
  - Product preparation error [Unknown]
  - Scratch [Unknown]
  - Pruritus [Unknown]
  - Injection site pruritus [Unknown]
